FAERS Safety Report 20491658 (Version 2)
Quarter: 2022Q1

REPORT INFORMATION
  Report Type: Other
  Country: US (occurrence: None)
  Receive Date: 20220218
  Receipt Date: 20220301
  Transmission Date: 20220423
  Serious: Yes (Death)
  Sender: FDA-Public Use
  Company Number: US-ROCHE-3028846

PATIENT
  Sex: Female
  Weight: 72.3 kg

DRUGS (2)
  1. AVASTIN [Suspect]
     Active Substance: BEVACIZUMAB
     Indication: Ovarian germ cell cancer
     Dosage: INFUSE 15MG/KG INTRAVENOUSLY EVERY 21 DAY(S)
     Route: 042
  2. AVASTIN [Suspect]
     Active Substance: BEVACIZUMAB
     Indication: Ovarian cancer
     Dosage: INFUSE 15MG/KG INTRAVENOUSLY EVERY 21 DAY(S)
     Route: 042

REACTIONS (1)
  - Death [Fatal]
